FAERS Safety Report 26044397 (Version 1)
Quarter: 2025Q4

REPORT INFORMATION
  Report Type: Spontaneous
  Country: GB (occurrence: GB)
  Receive Date: 20251114
  Receipt Date: 20251114
  Transmission Date: 20260118
  Serious: Yes (Other)
  Sender: ACCORD
  Company Number: None

PATIENT
  Age: 67 Year
  Sex: Male
  Weight: 75 kg

DRUGS (1)
  1. FINASTERIDE [Suspect]
     Active Substance: FINASTERIDE
     Indication: Hypertonic bladder
     Dosage: 5 GM MORNING

REACTIONS (1)
  - Disorder of sex development [Not Recovered/Not Resolved]

NARRATIVE: CASE EVENT DATE: 19571127
